FAERS Safety Report 8611537-3 (Version None)
Quarter: 2012Q3

REPORT INFORMATION
  Report Type: 
  Country: None (occurrence: None)
  Receive Date: 20120822
  Receipt Date: 20120814
  Transmission Date: 20120928
  Serious: Yes (Hospitalization, Other)
  Sender: FDA-Public Use
  Company Number: US-BAYER-2012-084138

PATIENT
  Sex: Female

DRUGS (1)
  1. MIRENA [Suspect]
     Indication: CONTRACEPTION
     Dosage: 20 MCG/24HR, CONT
     Route: 015
     Dates: start: 20090501

REACTIONS (12)
  - ANXIETY [None]
  - GRAND MAL CONVULSION [None]
  - BACTERIAL INFECTION [None]
  - POST-TRAUMATIC STRESS DISORDER [None]
  - ABDOMINAL PAIN [None]
  - GASTRITIS [None]
  - BACK PAIN [None]
  - MAJOR DEPRESSION [None]
  - PROCEDURAL PAIN [None]
  - PANIC REACTION [None]
  - AFFECTIVE DISORDER [None]
  - AMENORRHOEA [None]
